FAERS Safety Report 18368540 (Version 1)
Quarter: 2020Q4

REPORT INFORMATION
  Report Type: Spontaneous
  Country: PL (occurrence: PL)
  Receive Date: 20201010
  Receipt Date: 20201010
  Transmission Date: 20210114
  Serious: No
  Sender: FDA-Public Use
  Company Number: PL-009507513-2010POL002205

PATIENT
  Sex: Male

DRUGS (1)
  1. ELOCOM [Suspect]
     Active Substance: MOMETASONE FUROATE
     Indication: OFF LABEL USE

REACTIONS (1)
  - Incorrect route of product administration [Unknown]
